FAERS Safety Report 8807318 (Version 1)
Quarter: 2012Q4

REPORT INFORMATION
  Report Type: 
  Country: US (occurrence: US)
  Receive Date: 20120925
  Receipt Date: 20120925
  Transmission Date: 20130627
  Serious: Yes (Death, Other)
  Sender: FDA-Public Use
  Company Number: US-ARROW-2012-16539

PATIENT
  Age: 38 Year
  Sex: Male

DRUGS (3)
  1. AZATHIOPRINE (UNKNOWN) [Suspect]
     Indication: PEMPHIGUS
     Dosage: 50 mg, daily
     Route: 065
  2. PREDNISONE (WATSON LABORATORIES) [Suspect]
     Indication: PEMPHIGUS
     Dosage: 120 mg, daily
     Route: 065
  3. PREDNISONE (WATSON LABORATORIES) [Suspect]
     Dosage: 50 mg, daily
     Route: 065

REACTIONS (3)
  - Alpha-1 anti-trypsin abnormal [Fatal]
  - Herpes zoster [Fatal]
  - Diabetes mellitus [Fatal]
